FAERS Safety Report 10567049 (Version 1)
Quarter: 2014Q4

REPORT INFORMATION
  Report Type: Spontaneous
  Country: GB (occurrence: GB)
  Receive Date: 20141105
  Receipt Date: 20141105
  Transmission Date: 20150529
  Serious: Yes (Life-Threatening)
  Sender: FDA-Public Use
  Company Number: GB-WATSON-2014-23356

PATIENT
  Age: 18 Year
  Sex: Female
  Weight: 66 kg

DRUGS (3)
  1. PARACETAMOL [Concomitant]
     Active Substance: ACETAMINOPHEN
     Indication: PRODUCT USED FOR UNKNOWN INDICATION
     Dosage: UNK
     Route: 065
  2. MICROGYNON                         /00022701/ [Concomitant]
     Active Substance: ETHINYL ESTRADIOL\LEVONORGESTREL ACETATE
     Indication: PRODUCT USED FOR UNKNOWN INDICATION
     Dosage: UNK; MICROGYNON ED
     Route: 065
  3. CIPROFLOXACIN HYDROCHLORIDE. [Suspect]
     Active Substance: CIPROFLOXACIN HYDROCHLORIDE
     Indication: PYELONEPHRITIS ACUTE
     Dosage: 500 MG, TOTAL
     Route: 048
     Dates: start: 20141011, end: 20141011

REACTIONS (5)
  - Pharyngeal oedema [Recovered/Resolved]
  - Hypersensitivity [Recovered/Resolved]
  - Nausea [Recovered/Resolved]
  - Rhinorrhoea [Recovered/Resolved]
  - Pruritus [Recovered/Resolved]

NARRATIVE: CASE EVENT DATE: 20141011
